FAERS Safety Report 7776209-6 (Version None)
Quarter: 2011Q3

REPORT INFORMATION
  Report Type: 
  Country: None (occurrence: None)
  Receive Date: 20110926
  Receipt Date: 20110922
  Transmission Date: 20111222
  Serious: No
  Sender: FDA-Public Use
  Company Number: US-PFIZER INC-2011226136

PATIENT
  Sex: Female
  Weight: 90.703 kg

DRUGS (2)
  1. LEVORA 0.15/30-21 [Concomitant]
     Indication: CONTRACEPTION
     Dosage: 0.15/0.03 MG, DAILY
     Dates: start: 20080101
  2. PRISTIQ [Suspect]
     Indication: DEPRESSION
     Dosage: UNK
     Dates: start: 20100101

REACTIONS (2)
  - MENSTRUAL DISORDER [None]
  - DYSMENORRHOEA [None]
